FAERS Safety Report 16483757 (Version 1)
Quarter: 2019Q2

REPORT INFORMATION
  Report Type: Spontaneous
  Country: US (occurrence: US)
  Receive Date: 20190627
  Receipt Date: 20190627
  Transmission Date: 20190711
  Serious: No
  Sender: FDA-Public Use
  Company Number: US-TEVA-2019-US-1059682

PATIENT

DRUGS (1)
  1. METFORMIN HYDROCHLORIDE TABLET 500MG, 850 MG AND 1000MG [Suspect]
     Active Substance: METFORMIN HYDROCHLORIDE
     Route: 065

REACTIONS (5)
  - Arthralgia [Unknown]
  - Weight increased [Unknown]
  - Peripheral swelling [Unknown]
  - Blood glucose increased [Unknown]
  - Joint swelling [Unknown]
